FAERS Safety Report 6831012-6 (Version None)
Quarter: 2010Q2

REPORT INFORMATION
  Report Type: 
  Country: None (occurrence: None)
  Receive Date: 20100520
  Receipt Date: 20090506
  Transmission Date: 20101027
  Serious: Yes (Other)
  Sender: FDA-Public Use
  Company Number: 2009210747

PATIENT
  Age: 61 Year
  Sex: Female
  Weight: 51 kg

DRUGS (6)
  1. PROVERA [Suspect]
     Indication: HORMONE REPLACEMENT THERAPY
     Dosage: 2.5 MG, ORAL
     Route: 048
     Dates: start: 19920501, end: 19951201
  2. MEDROXYPROGESTERONE ACETATE [Suspect]
     Indication: HOT FLUSH
     Dosage: 2.5 MG, ORAL
     Route: 048
     Dates: start: 19951201, end: 19961001
  3. PREMARIN [Suspect]
     Indication: HOT FLUSH
     Dosage: 0.625 MG
     Dates: start: 19961101, end: 19961201
  4. PREMPRO [Suspect]
     Indication: HOT FLUSH
     Dosage: 0.625MG
     Dates: start: 19961201, end: 20020601
  5. FOSAMAX [Concomitant]
  6. AMITRIPTYLINE HYDROCHLORIDE [Concomitant]

REACTIONS (1)
  - BREAST CANCER FEMALE [None]
